FAERS Safety Report 6336983-2 (Version None)
Quarter: 2009Q3

REPORT INFORMATION
  Report Type: 
  Country: None (occurrence: None)
  Receive Date: 20090901
  Receipt Date: 20090824
  Transmission Date: 20100115
  Serious: Yes (Other)
  Sender: FDA-Public Use
  Company Number: PHHO2009NL10396

PATIENT
  Sex: Female
  Weight: 68 kg

DRUGS (1)
  1. ERL 080A ERL+TAB [Suspect]
     Indication: LUNG TRANSPLANT
     Dosage: 1440 MG, QD
     Route: 048
     Dates: start: 20080805, end: 20090728

REACTIONS (2)
  - BRONCHIAL SECRETION RETENTION [None]
  - BRONCHIECTASIS [None]
